FAERS Safety Report 5592506-7 (Version None)
Quarter: 2008Q1

REPORT INFORMATION
  Report Type: 
  Country: None (occurrence: None)
  Receive Date: 20080115
  Receipt Date: 20080103
  Transmission Date: 20080703
  Serious: Yes (Other)
  Sender: FDA-Public Use
  Company Number: IN-PFIZER INC-2008001247

PATIENT
  Age: 38 Year
  Sex: Male
  Weight: 82 kg

DRUGS (1)
  1. PHENYTOIN [Suspect]

REACTIONS (3)
  - ARTERIAL THROMBOSIS LIMB [None]
  - LABILE BLOOD PRESSURE [None]
  - PURPLE GLOVE SYNDROME [None]
